FAERS Safety Report 12014176 (Version 2)
Quarter: 2016Q1

REPORT INFORMATION
  Report Type: Spontaneous
  Country: US (occurrence: US)
  Receive Date: 20160205
  Receipt Date: 20160308
  Transmission Date: 20160526
  Serious: Yes (Death, Hospitalization, Other)
  Sender: FDA-Public Use
  Company Number: US-ELI_LILLY_AND_COMPANY-US201601009774

PATIENT
  Age: 65 Year
  Sex: Female

DRUGS (3)
  1. TORSEMIDE. [Concomitant]
     Active Substance: TORSEMIDE
     Dosage: 40 MG, QD
     Route: 065
  2. AMBRISENTAN [Suspect]
     Active Substance: AMBRISENTAN
     Indication: PULMONARY HYPERTENSION
     Dosage: 5 MG, QD
     Route: 065
     Dates: start: 20151130
  3. ADCIRCA [Suspect]
     Active Substance: TADALAFIL
     Indication: PRODUCT USED FOR UNKNOWN INDICATION
     Dosage: UNK, UNKNOWN
     Route: 065

REACTIONS (8)
  - Cardiac failure [Unknown]
  - Dyspnoea exertional [Unknown]
  - Fluid retention [Unknown]
  - Pulmonary hypertension [Unknown]
  - Weight increased [Unknown]
  - Respiratory failure [Unknown]
  - Oedema [Unknown]
  - Death [Fatal]

NARRATIVE: CASE EVENT DATE: 20151205
